FAERS Safety Report 8247380-7 (Version None)
Quarter: 2012Q1

REPORT INFORMATION
  Report Type: 
  Country: None (occurrence: None)
  Receive Date: 20120330
  Receipt Date: 20120328
  Transmission Date: 20120608
  Serious: Yes (Hospitalization, Other)
  Sender: FDA-Public Use
  Company Number: VE-PFIZER INC-2012072553

PATIENT
  Age: 39 Year
  Sex: Female

DRUGS (1)
  1. LIPITOR [Suspect]
     Indication: HYPOTHYROIDISM
     Dosage: 10 MG, 1X/DAY
     Route: 048
     Dates: start: 20100101

REACTIONS (2)
  - OVARIAN CYST [None]
  - VAGINAL HAEMORRHAGE [None]
